FAERS Safety Report 18439769 (Version 6)
Quarter: 2020Q4

REPORT INFORMATION
  Report Type: Report from Study
  Country: US (occurrence: US)
  Receive Date: 20201029
  Receipt Date: 20201204
  Transmission Date: 20210114
  Serious: Yes (Hospitalization, Other)
  Sender: FDA-Public Use
  Company Number: US-GILEAD-2020-0501827

PATIENT
  Age: 77 Year
  Sex: Female

DRUGS (6)
  1. TADALAFIL. [Concomitant]
     Active Substance: TADALAFIL
  2. AMBRISENTAN [Suspect]
     Active Substance: AMBRISENTAN
     Indication: PULMONARY HYPERTENSION
  3. ELIQUIS [Concomitant]
     Active Substance: APIXABAN
  4. VELETRI [Concomitant]
     Active Substance: EPOPROSTENOL
     Dosage: 4 NG/KG/MIN
  5. AMBRISENTAN [Suspect]
     Active Substance: AMBRISENTAN
     Indication: PULMONARY HYPERTENSION
     Dosage: 10 MG, QD
     Route: 065
     Dates: start: 20190206
  6. VELETRI [Concomitant]
     Active Substance: EPOPROSTENOL
     Dosage: 2NG/KG/MIN
     Dates: start: 202010

REACTIONS (6)
  - Syncope [Unknown]
  - Small intestinal obstruction [Not Recovered/Not Resolved]
  - Headache [Unknown]
  - Nausea [Unknown]
  - Erythema [Unknown]
  - Diarrhoea [Unknown]
